FAERS Safety Report 15256815 (Version 2)
Quarter: 2018Q3

REPORT INFORMATION
  Report Type: Spontaneous
  Country: CN (occurrence: CN)
  Receive Date: 20180808
  Receipt Date: 20180817
  Transmission Date: 20181010
  Serious: Yes (Hospitalization, Other)
  Sender: FDA-Public Use
  Company Number: PHHY2018CN065353

PATIENT
  Age: 30 Year
  Sex: Male
  Weight: 62 kg

DRUGS (2)
  1. BENZHEXOL HYDROCHLORIDE [Concomitant]
     Active Substance: TRIHEXYPHENIDYL HYDROCHLORIDE
     Indication: PRODUCT USED FOR UNKNOWN INDICATION
     Dosage: 2 MG, QD (ONE CAPSULE/EVERYDAY)
     Route: 065
  2. RISPERIDONE. [Suspect]
     Active Substance: RISPERIDONE
     Indication: SCHIZOPHRENIA
     Dosage: 1 MG, UNK
     Route: 048
     Dates: start: 20170720

REACTIONS (7)
  - Hallucination, visual [Recovered/Resolved with Sequelae]
  - Disease recurrence [Unknown]
  - Hallucination, auditory [Recovered/Resolved with Sequelae]
  - Hallucination, auditory [Unknown]
  - Speech disorder [Unknown]
  - Persecutory delusion [Unknown]
  - Hallucination, visual [Unknown]

NARRATIVE: CASE EVENT DATE: 20180405
